FAERS Safety Report 22997068 (Version 2)
Quarter: 2023Q4

REPORT INFORMATION
  Report Type: Report from Study
  Country: CA (occurrence: CA)
  Receive Date: 20230928
  Receipt Date: 20231005
  Transmission Date: 20240109
  Serious: Yes (Other)
  Sender: FDA-Public Use
  Company Number: CA-BEH-2023158674

PATIENT
  Age: 90 Year
  Sex: Female
  Weight: 57.2 kg

DRUGS (7)
  1. HIZENTRA [Suspect]
     Active Substance: HUMAN IMMUNOGLOBULIN G
     Indication: Primary immunodeficiency syndrome
     Dosage: 6 GRAM, QW
     Route: 065
     Dates: start: 20221122, end: 20230926
  2. HIZENTRA [Suspect]
     Active Substance: HUMAN IMMUNOGLOBULIN G
     Dosage: UNK
     Route: 065
     Dates: start: 20221122
  3. HIZENTRA [Suspect]
     Active Substance: HUMAN IMMUNOGLOBULIN G
     Dosage: UNK
     Route: 065
     Dates: start: 20221122
  4. HIZENTRA [Suspect]
     Active Substance: HUMAN IMMUNOGLOBULIN G
     Dosage: UNK
     Route: 065
     Dates: start: 20221122
  5. HIZENTRA [Suspect]
     Active Substance: HUMAN IMMUNOGLOBULIN G
     Dosage: UNK
     Route: 065
     Dates: start: 20230926
  6. AMLODIPINE [Concomitant]
     Active Substance: AMLODIPINE BESYLATE
  7. BISOPROLOL [Concomitant]
     Active Substance: BISOPROLOL\BISOPROLOL FUMARATE

REACTIONS (23)
  - Renal neoplasm [Unknown]
  - Loss of consciousness [Unknown]
  - Vulvovaginal pain [Recovering/Resolving]
  - Vaginal infection [Unknown]
  - Cystitis [Unknown]
  - Micturition disorder [Unknown]
  - Blood pressure decreased [Unknown]
  - Fall [Unknown]
  - Intranasal hypoaesthesia [Unknown]
  - Facial pain [Unknown]
  - Blood pressure systolic increased [Recovered/Resolved]
  - Renal cyst [Unknown]
  - Pollakiuria [Not Recovered/Not Resolved]
  - Arrhythmia [Unknown]
  - Hypotension [Unknown]
  - Ovarian cancer [Unknown]
  - Gastrointestinal neoplasm [Unknown]
  - Neoplasm malignant [Unknown]
  - Pulmonary oedema [Unknown]
  - Decreased appetite [Unknown]
  - Nausea [Unknown]
  - No adverse event [Unknown]
  - Therapy cessation [Unknown]

NARRATIVE: CASE EVENT DATE: 20230518
